FAERS Safety Report 6730117-8 (Version None)
Quarter: 2010Q2

REPORT INFORMATION
  Report Type: 
  Country: None (occurrence: None)
  Receive Date: 20100513
  Receipt Date: 20100427
  Transmission Date: 20101027
  Serious: Yes (Other)
  Sender: FDA-Public Use
  Company Number: 2010S1002669

PATIENT
  Sex: Male

DRUGS (3)
  1. PHOSPHOSODA FLAVOR NOT SPECIFIED [Suspect]
     Indication: DRUG USE FOR UNKNOWN INDICATION
     Dosage: 45 ML; PO
     Route: 048
  2. FLEET BISACODYL TABLETS [Suspect]
     Indication: DRUG USE FOR UNKNOWN INDICATION
     Dosage: PO
     Route: 048
  3. FLEET BISACODYL ENEMA [Suspect]
     Indication: DRUG USE FOR UNKNOWN INDICATION
     Dosage: 37 ML; RTL

REACTIONS (1)
  - RENAL IMPAIRMENT [None]
